FAERS Safety Report 4264714-9 (Version None)
Quarter: 2004Q1

REPORT INFORMATION
  Report Type: 
  Country: None (occurrence: None)
  Receive Date: 20040102
  Receipt Date: 20031210
  Transmission Date: 20041129
  Serious: Yes (Hospitalization)
  Sender: FDA-Public Use
  Company Number: A03200302675

PATIENT
  Age: 76 Year
  Sex: Female
  Weight: 65.7716 kg

DRUGS (4)
  1. ELOXATIN [Suspect]
     Indication: COLORECTAL CANCER STAGE IV
     Dosage: 220 MG Q3W - INTRAVENOUS NOS
     Route: 042
     Dates: start: 20031016, end: 20031016
  2. ELOXATIN [Suspect]
     Indication: METASTASES TO LIVER
     Dosage: 220 MG Q3W - INTRAVENOUS NOS
     Route: 042
     Dates: start: 20031016, end: 20031016
  3. ASPIRIN [Suspect]
     Dosage: ORAL
     Route: 048
     Dates: end: 20031001
  4. SPIRONOLACTONE + THIAZIDE [Concomitant]

REACTIONS (7)
  - DIFFICULTY IN WALKING [None]
  - DIZZINESS [None]
  - DYSARTHRIA [None]
  - GRANULOCYTE COUNT DECREASED [None]
  - HOARSENESS [None]
  - THROMBOCYTOPENIA [None]
  - TRANSIENT ISCHAEMIC ATTACK [None]
